FAERS Safety Report 7903036-9 (Version None)
Quarter: 2011Q4

REPORT INFORMATION
  Report Type: 
  Country: None (occurrence: None)
  Receive Date: 20111103
  Receipt Date: 20111025
  Transmission Date: 20120403
  Serious: Yes (Other)
  Sender: FDA-Public Use
  Company Number: 2011SP050489

PATIENT
  Age: 80 Year
  Sex: Male

DRUGS (2)
  1. PEROSPIRONE HYDROCHLORIDE [Concomitant]
  2. MIRTAZAPINE [Suspect]
     Indication: DEPRESSION
     Dosage: 15 MG; QD; PO
     Route: 048
     Dates: start: 20110804, end: 20110808

REACTIONS (1)
  - PARKINSONISM [None]
